FAERS Safety Report 19829679 (Version 1)
Quarter: 2021Q3

REPORT INFORMATION
  Report Type: Spontaneous
  Country: US (occurrence: US)
  Receive Date: 20210914
  Receipt Date: 20210914
  Transmission Date: 20211014
  Serious: Yes (Hospitalization)
  Sender: FDA-Public Use
  Company Number: None

PATIENT
  Age: 67 Year
  Sex: Female

DRUGS (1)
  1. REGEN?COV [Suspect]
     Active Substance: CASIRIVIMAB\IMDEVIMAB
     Route: 058
     Dates: start: 20210913, end: 20210913

REACTIONS (5)
  - Hyperhidrosis [None]
  - Oxygen saturation decreased [None]
  - Nausea [None]
  - Syncope [None]
  - Vomiting [None]

NARRATIVE: CASE EVENT DATE: 20210913
